FAERS Safety Report 7797171-6 (Version None)
Quarter: 2011Q4

REPORT INFORMATION
  Report Type: 
  Country: None (occurrence: None)
  Receive Date: 20111005
  Receipt Date: 20110927
  Transmission Date: 20120403
  Serious: Yes (Other)
  Sender: FDA-Public Use
  Company Number: FR-UCBSA-036493

PATIENT
  Sex: Female

DRUGS (2)
  1. METHOTREXATE SODIUM [Concomitant]
     Indication: RHEUMATOID ARTHRITIS
  2. CIMZIA [Suspect]
     Indication: RHEUMATOID ARTHRITIS
     Dosage: ONLY ONE INJECTION
     Route: 058

REACTIONS (3)
  - DERMATITIS ALLERGIC [None]
  - LIP OEDEMA [None]
  - PRURITUS [None]
